FAERS Safety Report 7262815-4 (Version None)
Quarter: 2011Q1

REPORT INFORMATION
  Report Type: 
  Country: None (occurrence: None)
  Receive Date: 20110130
  Receipt Date: 20100913
  Transmission Date: 20110831
  Serious: No
  Sender: FDA-Public Use
  Company Number: US-ABBOTT-10P-163-0670648-00

PATIENT
  Age: 73 Year
  Sex: Male

DRUGS (7)
  1. HUMIRA [Suspect]
     Indication: RHEUMATOID ARTHRITIS
     Dates: start: 20100810
  2. LORAZEPAM [Concomitant]
     Indication: NERVOUSNESS
  3. PREDNISONE [Concomitant]
     Indication: ARTHRITIS
  4. PLAVIX [Concomitant]
     Indication: BLOOD CHOLESTEROL INCREASED
  5. METHOTREXATE [Concomitant]
     Indication: ARTHRITIS
  6. PERCOCET [Concomitant]
     Indication: PAIN
     Dosage: 10/325
  7. CRESTOR [Concomitant]
     Indication: PRODUCT USED FOR UNKNOWN INDICATION

REACTIONS (1)
  - PAIN [None]
